FAERS Safety Report 7738392-8 (Version None)
Quarter: 2011Q3

REPORT INFORMATION
  Report Type: 
  Country: None (occurrence: None)
  Receive Date: 20110908
  Receipt Date: 20110826
  Transmission Date: 20111222
  Serious: No
  Sender: FDA-Public Use
  Company Number: DE-GENENTECH-322232

PATIENT
  Sex: Male
  Weight: 72 kg

DRUGS (2)
  1. PREDNISOLONE [Concomitant]
     Indication: PRODUCT USED FOR UNKNOWN INDICATION
     Dosage: 5 MG, UNK
     Dates: start: 20060101
  2. XOLAIR [Suspect]
     Indication: ASTHMA
     Dosage: 150 MG, 1/MONTH
     Route: 058

REACTIONS (3)
  - ORTHOSTATIC HYPOTENSION [None]
  - ANXIETY [None]
  - INJECTION SITE PAIN [None]
